FAERS Safety Report 11783207 (Version 2)
Quarter: 2016Q1

REPORT INFORMATION
  Report Type: Spontaneous
  Country: JP (occurrence: JP)
  Receive Date: 20151127
  Receipt Date: 20160115
  Transmission Date: 20160525
  Serious: Yes (Hospitalization, Other)
  Sender: FDA-Public Use
  Company Number: PHHY2015JP140206

PATIENT
  Age: 43 Year
  Sex: Male
  Weight: 64 kg

DRUGS (2)
  1. IMUSERA [Suspect]
     Active Substance: FINGOLIMOD HYDROCHLORIDE
     Indication: MULTIPLE SCLEROSIS
     Dosage: 0.5 MG, QD (1 IN 1 D)
     Route: 048
     Dates: start: 20130627
  2. METHYLPREDNISOLONE SODIUM SUCCINATE. [Suspect]
     Active Substance: METHYLPREDNISOLONE SODIUM SUCCINATE
     Indication: MULTIPLE SCLEROSIS
     Dosage: 1000 MG, TID
     Route: 042
     Dates: start: 20140512, end: 20140514

REACTIONS (2)
  - Tuberculosis [Not Recovered/Not Resolved]
  - Toxoplasma serology positive [Not Recovered/Not Resolved]

NARRATIVE: CASE EVENT DATE: 20150216
